FAERS Safety Report 7702032-4 (Version None)
Quarter: 2011Q3

REPORT INFORMATION
  Report Type: 
  Country: None (occurrence: None)
  Receive Date: 20110822
  Receipt Date: 20110822
  Transmission Date: 20111222
  Serious: Yes (Death)
  Sender: FDA-Public Use
  Company Number: DK-PFIZER INC-2011185510

PATIENT

DRUGS (1)
  1. CYTOTEC [Suspect]
     Dosage: UNK
     Route: 064
     Dates: start: 20090519

REACTIONS (2)
  - UMBILICAL CORD AROUND NECK [None]
  - MATERNAL EXPOSURE DURING PREGNANCY [None]
